FAERS Safety Report 18481028 (Version 2)
Quarter: 2020Q4

REPORT INFORMATION
  Report Type: Report from Study
  Country: IE (occurrence: IE)
  Receive Date: 20201109
  Receipt Date: 20201218
  Transmission Date: 20210114
  Serious: Yes (Other)
  Sender: FDA-Public Use
  Company Number: IE-EMD SERONO-9196938

PATIENT
  Age: 54 Year
  Sex: Male

DRUGS (3)
  1. SAIZEN [Suspect]
     Active Substance: SOMATROPIN
     Route: 058
     Dates: start: 20180122, end: 2020
  2. SAIZEN [Suspect]
     Active Substance: SOMATROPIN
     Dosage: LIQUID CARTRIDGE
     Route: 058
     Dates: start: 20150323, end: 20180122
  3. SAIZEN [Suspect]
     Active Substance: SOMATROPIN
     Indication: GROWTH HORMONE DEFICIENCY
     Dosage: LIQUID CARTRIDGE
     Route: 058
     Dates: start: 20150219, end: 20150323

REACTIONS (1)
  - Diabetes mellitus [Unknown]

NARRATIVE: CASE EVENT DATE: 2020
